FAERS Safety Report 20512877 (Version 3)
Quarter: 2022Q2

REPORT INFORMATION
  Report Type: Report from Study
  Country: CA (occurrence: CA)
  Receive Date: 20220224
  Receipt Date: 20220613
  Transmission Date: 20220720
  Serious: Yes (Other)
  Sender: FDA-Public Use
  Company Number: CA-BRISTOL-MYERS SQUIBB COMPANY-BMS-2021-106245

PATIENT
  Age: 58 Year
  Sex: Male
  Weight: 74 kg

DRUGS (5)
  1. NIVOLUMAB [Suspect]
     Active Substance: NIVOLUMAB
     Indication: Non-small cell lung cancer
     Dosage: 360 MILLIGRAM, Q3WK
     Route: 042
     Dates: start: 20211004
  2. YERVOY [Suspect]
     Active Substance: IPILIMUMAB
     Indication: Non-small cell lung cancer
     Dosage: 77 MILLIGRAM, Q6WK
     Route: 042
     Dates: start: 20211004
  3. YERVOY [Suspect]
     Active Substance: IPILIMUMAB
     Dosage: 74.5 MILLIGRAM, Q6WK
     Route: 042
     Dates: start: 20211004
  4. CANDESARTAN [Concomitant]
     Active Substance: CANDESARTAN
     Indication: Product used for unknown indication
     Dosage: UNK
     Route: 065
  5. FENTANYL [Concomitant]
     Active Substance: FENTANYL
     Indication: Product used for unknown indication
     Dosage: UNK
     Route: 065

REACTIONS (11)
  - Malignant neoplasm progression [Unknown]
  - Central nervous system lesion [Unknown]
  - Fatigue [Recovering/Resolving]
  - Blood pressure systolic increased [Unknown]
  - Nausea [Recovering/Resolving]
  - Facial pain [Recovering/Resolving]
  - Condition aggravated [Recovering/Resolving]
  - Dyspnoea [Unknown]
  - Headache [Recovered/Resolved]
  - Decreased appetite [Unknown]
  - Off label use [Unknown]

NARRATIVE: CASE EVENT DATE: 20220202
